FAERS Safety Report 5001584-5 (Version None)
Quarter: 2006Q2

REPORT INFORMATION
  Report Type: 
  Country: None (occurrence: None)
  Receive Date: 20060511
  Receipt Date: 20060511
  Transmission Date: 20061013
  Serious: Yes (Other)
  Sender: FDA-Public Use
  Company Number: None

PATIENT
  Sex: Male

DRUGS (1)
  1. BYETTA [Suspect]
     Indication: ADVERSE DRUG REACTION
     Dosage: 5UG BID
     Dates: start: 20060331, end: 20060502

REACTIONS (3)
  - CHEST DISCOMFORT [None]
  - PRURITUS [None]
  - RASH GENERALISED [None]
